FAERS Safety Report 12466982 (Version 2)
Quarter: 2016Q3

REPORT INFORMATION
  Report Type: Spontaneous
  Country: US (occurrence: US)
  Receive Date: 20160615
  Receipt Date: 20160725
  Transmission Date: 20161109
  Serious: Yes (Death)
  Sender: FDA-Public Use
  Company Number: PHEH2016US014761

PATIENT
  Sex: Male
  Weight: 89.6 kg

DRUGS (1)
  1. HYCAMTIN [Suspect]
     Active Substance: TOPOTECAN HYDROCHLORIDE
     Indication: NEUROENDOCRINE TUMOUR
     Dosage: 1 MG, QD
     Route: 048
     Dates: start: 20160120

REACTIONS (3)
  - Product use issue [Unknown]
  - Sepsis [Fatal]
  - Disseminated intravascular coagulation [Fatal]
